FAERS Safety Report 4801613-5 (Version None)
Quarter: 2005Q4

REPORT INFORMATION
  Report Type: 
  Country: None (occurrence: None)
  Receive Date: 20051018
  Receipt Date: 20051012
  Transmission Date: 20060501
  Serious: Yes (Death, Hospitalization)
  Sender: FDA-Public Use
  Company Number: 200519094GDDC

PATIENT
  Age: 79 Year
  Sex: Male

DRUGS (1)
  1. OCTOSTIM [Suspect]
     Indication: HAEMOPHILIA
     Dosage: DOSE: UNK
     Route: 042

REACTIONS (2)
  - CARDIAC ARREST [None]
  - PROCEDURAL COMPLICATION [None]
